FAERS Safety Report 4527345-9 (Version None)
Quarter: 2004Q4

REPORT INFORMATION
  Report Type: 
  Country: None (occurrence: None)
  Receive Date: 20041214
  Receipt Date: 20041214
  Transmission Date: 20050328
  Serious: Yes (Death, Hospitalization)
  Sender: FDA-Public Use
  Company Number: None

PATIENT
  Age: 66 Year
  Sex: Male
  Weight: 64.6376 kg

DRUGS (2)
  1. OXALIPLATIN  CAPECITABINE 750MG/M^2  DAY 1THROUGH 14 [Suspect]
     Indication: HEPATIC NEOPLASM MALIGNANT
     Dosage: 130MG/M^2  DAY 1 INTRAVENOUS
     Route: 042
     Dates: start: 20041022, end: 20041112
  2. VELCADE [Suspect]
     Dosage: 1.00 MG/M^2  DAY 1 AND 8 INTRAVENOUS
     Route: 042
     Dates: start: 20041022, end: 20041112

REACTIONS (7)
  - ASCITES [None]
  - ASTHENIA [None]
  - DISEASE PROGRESSION [None]
  - GENERAL PHYSICAL HEALTH DETERIORATION [None]
  - HEPATIC FUNCTION ABNORMAL [None]
  - HYPONATRAEMIA [None]
  - HYPOTENSION [None]
